FAERS Safety Report 6557763-9 (Version None)
Quarter: 2010Q1

REPORT INFORMATION
  Report Type: 
  Country: None (occurrence: None)
  Receive Date: 20100129
  Receipt Date: 20100122
  Transmission Date: 20100710
  Serious: Yes (Other)
  Sender: FDA-Public Use
  Company Number: US-ROXANE LABORATORIES, INC.-2010-RO-00089RO

PATIENT
  Age: 51 Year
  Sex: Female

DRUGS (4)
  1. ZOLPIDEM [Suspect]
     Indication: INSOMNIA
     Dosage: 10 MG
  2. PAROXETINE HCL [Suspect]
     Dosage: 20 MG
  3. METOPROLOL [Suspect]
     Dosage: 50 MG
  4. SIMVASTATIN [Suspect]
     Dosage: 40 MG

REACTIONS (4)
  - AMNESIA [None]
  - SLEEP TALKING [None]
  - SLEEP-RELATED EATING DISORDER [None]
  - SOMNAMBULISM [None]
